FAERS Safety Report 16393109 (Version 1)
Quarter: 2019Q2

REPORT INFORMATION
  Report Type: Spontaneous
  Country: SK (occurrence: SK)
  Receive Date: 20190605
  Receipt Date: 20190605
  Transmission Date: 20190711
  Serious: Yes (Hospitalization, Other)
  Sender: FDA-Public Use
  Company Number: SK-BAYER-2019-093769

PATIENT
  Age: 34 Year
  Sex: Female

DRUGS (1)
  1. PRIMOVIST [Suspect]
     Active Substance: GADOXETATE DISODIUM
     Indication: NUCLEAR MAGNETIC RESONANCE IMAGING LIVER
     Dosage: 10 ML, UNK
     Route: 042
     Dates: start: 20190506, end: 20190506

REACTIONS (9)
  - Burning sensation [None]
  - Skin burning sensation [Not Recovered/Not Resolved]
  - Dyspepsia [None]
  - Tongue oedema [Recovered/Resolved]
  - Blood creatinine increased [None]
  - Eye pain [None]
  - Epiglottic oedema [Recovered/Resolved]
  - Arthralgia [None]
  - Face oedema [Recovered/Resolved]

NARRATIVE: CASE EVENT DATE: 20190506
